FAERS Safety Report 8509544-4 (Version None)
Quarter: 2012Q3

REPORT INFORMATION
  Report Type: 
  Country: None (occurrence: None)
  Receive Date: 20120713
  Receipt Date: 20120703
  Transmission Date: 20120928
  Serious: Yes (Life-Threatening, Hospitalization, Other)
  Sender: FDA-Public Use
  Company Number: FR-BRISTOL-MYERS SQUIBB COMPANY-16737637

PATIENT
  Age: 68 Year
  Sex: Male

DRUGS (13)
  1. VALSARTAN  AND HYDROCHLOROTHIAZIDE [Concomitant]
  2. SPIRIVA [Concomitant]
  3. ALLOPURINOL [Concomitant]
  4. SIMVASTATIN [Concomitant]
  5. COUMADIN [Suspect]
     Indication: ISCHAEMIC CARDIOMYOPATHY
     Dosage: RESTARTED 2JUN12,FOR YEARS
     Route: 048
  6. ASPIRIN [Suspect]
     Indication: ISCHAEMIC CARDIOMYOPATHY
     Dosage: FOR YEARS
     Route: 048
  7. FUROSEMIDE [Suspect]
  8. POTASSIUM CHLORIDE [Concomitant]
  9. AMLODIPINE BESYLATE [Concomitant]
  10. AIROMIR [Concomitant]
  11. ACETAMINOPHEN AND TRAMADOL HCL [Concomitant]
  12. OMEPRAZOLE [Concomitant]
  13. COLCHICINE [Concomitant]

REACTIONS (8)
  - INTERNATIONAL NORMALISED RATIO INCREASED [None]
  - GASTROINTESTINAL HAEMORRHAGE [None]
  - WEIGHT DECREASED [None]
  - OVERDOSE [None]
  - ULCER [None]
  - HYPOKALAEMIA [None]
  - ACUTE PULMONARY OEDEMA [None]
  - SUBACUTE ENDOCARDITIS [None]
